FAERS Safety Report 8363326-5 (Version None)
Quarter: 2012Q2

REPORT INFORMATION
  Report Type: 
  Country: None (occurrence: None)
  Receive Date: 20120516
  Receipt Date: 20120410
  Transmission Date: 20120825
  Serious: Yes (Other)
  Sender: FDA-Public Use
  Company Number: US-BAYER-2012-040926

PATIENT
  Sex: Female

DRUGS (11)
  1. VALIUM [Concomitant]
     Indication: MUSCLE SPASMS
  2. NAPROXEN SODIUM [Suspect]
     Indication: PAIN
  3. LYRICA [Suspect]
     Indication: PAIN
     Route: 048
  4. NAPROXEN SODIUM [Suspect]
     Indication: PAIN
  5. GABAPENTIN [Suspect]
     Indication: PAIN
     Dosage: 100 MG, UNK
  6. NITROFURANTOIN [Suspect]
     Indication: INFECTION
  7. HYDROCODONE BITARTRATE [Suspect]
     Indication: PAIN
  8. CELECOXIB [Suspect]
     Indication: PAIN
     Dosage: 100 MG, BID
     Dates: start: 20110101
  9. OPIOIDS [Suspect]
     Indication: PAIN
  10. MOTRIN [Suspect]
     Indication: PAIN
  11. VOLTAREN [Suspect]
     Indication: PAIN

REACTIONS (14)
  - WRONG TECHNIQUE IN DRUG USAGE PROCESS [None]
  - SPINAL DISORDER [None]
  - BURNING SENSATION [None]
  - THERAPY REGIMEN CHANGED [None]
  - DISTURBANCE IN ATTENTION [None]
  - DRY MOUTH [None]
  - PARAESTHESIA [None]
  - NEURITIS [None]
  - ADVERSE REACTION [None]
  - GASTRIC DISORDER [None]
  - APHTHOUS STOMATITIS [None]
  - PAIN [None]
  - MENTAL IMPAIRMENT [None]
  - PANIC ATTACK [None]
